FAERS Safety Report 7645343-3 (Version None)
Quarter: 2011Q3

REPORT INFORMATION
  Report Type: 
  Country: None (occurrence: None)
  Receive Date: 20110729
  Receipt Date: 20110722
  Transmission Date: 20111222
  Serious: Yes (Other)
  Sender: FDA-Public Use
  Company Number: JP-CEPHALON-2011003995

PATIENT
  Age: 51 Year
  Sex: Female

DRUGS (3)
  1. BENDAMUSTINE HCL [Suspect]
     Route: 042
     Dates: start: 20110719, end: 20110720
  2. BENDAMUSTINE HCL [Suspect]
     Indication: B-CELL LYMPHOMA
     Route: 042
     Dates: start: 20110629, end: 20110701
  3. GRANISETRON HYDROCHLORIDE [Concomitant]

REACTIONS (1)
  - THROMBOPHLEBITIS [None]
